FAERS Safety Report 13080621 (Version 3)
Quarter: 2017Q1

REPORT INFORMATION
  Report Type: Spontaneous
  Country: US (occurrence: US)
  Receive Date: 20170103
  Receipt Date: 20170317
  Transmission Date: 20170428
  Serious: No
  Sender: FDA-Public Use
  Company Number: US-PFIZER INC-2016605452

PATIENT
  Age: 78 Year
  Sex: Female

DRUGS (9)
  1. IBRANCE [Suspect]
     Active Substance: PALBOCICLIB
     Indication: BREAST CANCER
     Dosage: 100 MG, CYCLIC, (21 DAYS ON 7 DAYS OFF)
  2. FENTANYL CITRATE. [Suspect]
     Active Substance: FENTANYL CITRATE
     Indication: PAIN
     Dosage: UNK
     Route: 062
     Dates: start: 20161219, end: 20161224
  3. GABAPENTIN. [Suspect]
     Active Substance: GABAPENTIN
     Dosage: 600 MG, 2X/DAY
     Dates: start: 2016
  4. LETROZOLE. [Suspect]
     Active Substance: LETROZOLE
     Indication: BURNING SENSATION
     Dosage: UNK
     Dates: end: 201607
  5. HYDROCODONE BITARTRATE AND ACETAMINOPHEN [Suspect]
     Active Substance: ACETAMINOPHEN\HYDROCODONE BITARTRATE
     Indication: BURNING SENSATION
     Dosage: UNK (TAKING HALF OF PILL)
  6. GABAPENTIN. [Suspect]
     Active Substance: GABAPENTIN
     Indication: BURNING SENSATION
     Dosage: 300 MG, UNK
  7. LYRICA [Suspect]
     Active Substance: PREGABALIN
     Indication: PAIN
     Dosage: 50 MG, UNK
     Dates: start: 20161219, end: 20161224
  8. HYDROCODONE BITARTRATE AND ACETAMINOPHEN [Suspect]
     Active Substance: ACETAMINOPHEN\HYDROCODONE BITARTRATE
     Indication: PAIN
     Dosage: UNK, (10-325 MG, 3 TO 4 TIMES DAILY)
     Dates: start: 201509
  9. FASLODEX [Concomitant]
     Active Substance: FULVESTRANT
     Dosage: ONE SHOT ON EACH SIDE OF BUTTOCKS, ONCE MONTHLY
     Dates: start: 201607

REACTIONS (4)
  - Asthenia [Unknown]
  - Headache [Unknown]
  - Dizziness [Unknown]
  - Sleep disorder [Unknown]
